FAERS Safety Report 5363721-2 (Version None)
Quarter: 2007Q2

REPORT INFORMATION
  Report Type: 
  Country: None (occurrence: None)
  Receive Date: 20070618
  Receipt Date: 20070618
  Transmission Date: 20071010
  Serious: No
  Sender: FDA-Public Use
  Company Number: None

PATIENT
  Age: 28 Year
  Sex: Female
  Weight: 90.7194 kg

DRUGS (2)
  1. LAMICTAL [Suspect]
     Indication: BIPOLAR DISORDER
     Dosage: 100 DAILY  PO
     Route: 048
     Dates: start: 20060831, end: 20060903
  2. LAMICTAL [Suspect]
     Indication: BORDERLINE PERSONALITY DISORDER
     Dosage: 100 DAILY  PO
     Route: 048
     Dates: start: 20060831, end: 20060903

REACTIONS (2)
  - DYSARTHRIA [None]
  - VISION BLURRED [None]
